FAERS Safety Report 8805603 (Version 2)
Quarter: 2015Q2

REPORT INFORMATION
  Report Type: Report from Study
  Country: US (occurrence: US)
  Receive Date: 20120924
  Receipt Date: 20150622
  Transmission Date: 20150821
  Serious: Yes (Death)
  Sender: FDA-Public Use
  Company Number: US-ROCHE-1096141

PATIENT
  Sex: Female

DRUGS (7)
  1. AVASTIN [Suspect]
     Active Substance: BEVACIZUMAB
     Dosage: 03/OCT/2005
     Route: 042
  2. TAXOTERE [Concomitant]
     Active Substance: DOCETAXEL
     Route: 065
  3. BENADRYL [Concomitant]
     Active Substance: DIPHENHYDRAMINE HYDROCHLORIDE
     Route: 065
  4. AVASTIN [Suspect]
     Active Substance: BEVACIZUMAB
     Indication: UTERINE CANCER
     Route: 042
  5. ALOXI [Concomitant]
     Active Substance: PALONOSETRON HYDROCHLORIDE
     Route: 065
  6. CYTOXAN [Concomitant]
     Active Substance: CYCLOPHOSPHAMIDE
     Route: 065
  7. ARANESP [Concomitant]
     Active Substance: DARBEPOETIN ALFA
     Route: 065

REACTIONS (2)
  - Death [Fatal]
  - Off label use [Unknown]
